FAERS Safety Report 18981244 (Version 1)
Quarter: 2021Q1

REPORT INFORMATION
  Report Type: Spontaneous
  Country: CN (occurrence: CN)
  Receive Date: 20210308
  Receipt Date: 20210308
  Transmission Date: 20210420
  Serious: Yes (Hospitalization, Other)
  Sender: FDA-Public Use
  Company Number: CN-ELI_LILLY_AND_COMPANY-CN202103000679

PATIENT
  Age: 29 Year
  Sex: Female

DRUGS (1)
  1. OLUMIANT [Suspect]
     Active Substance: BARICITINIB
     Indication: ANKYLOSING SPONDYLITIS
     Dosage: 2 MG, DAILY
     Route: 048
     Dates: start: 202011, end: 20210224

REACTIONS (3)
  - Pneumonia bacterial [Unknown]
  - Off label use [Unknown]
  - Acute leukaemia [Unknown]

NARRATIVE: CASE EVENT DATE: 20210224
